FAERS Safety Report 9057554 (Version 1)
Quarter: 2013Q1

REPORT INFORMATION
  Report Type: Spontaneous
  Country: US (occurrence: US)
  Receive Date: 20130204
  Receipt Date: 20130204
  Transmission Date: 20140127
  Serious: No
  Sender: FDA-Public Use
  Company Number: US-PFIZER INC-2013045158

PATIENT
  Age: 56 Year
  Sex: Female
  Weight: 61.22 kg

DRUGS (6)
  1. CHANTIX [Suspect]
     Indication: SMOKING CESSATION THERAPY
     Dosage: 0.5 MG, 2X/DAY
     Dates: start: 20121228
  2. CHANTIX [Suspect]
     Dosage: 1 MG, 2X/DAY
  3. SYNTHROID [Concomitant]
     Indication: HYPOTHYROIDISM
     Dosage: 0.5 MG, DAILY
  4. GABAPENTIN [Concomitant]
     Indication: NECK PAIN
     Dosage: 300 MG, 3X/DAY
  5. GABAPENTIN [Concomitant]
     Indication: MUSCULOSKELETAL PAIN
  6. FOSAMAX [Concomitant]
     Indication: OSTEOPOROSIS
     Dosage: 70 MG, WEEKLY

REACTIONS (1)
  - Hypoaesthesia [Not Recovered/Not Resolved]
